FAERS Safety Report 4319118-7 (Version None)
Quarter: 2004Q1

REPORT INFORMATION
  Report Type: 
  Country: None (occurrence: None)
  Receive Date: 20040318
  Receipt Date: 20040213
  Transmission Date: 20041129
  Serious: Yes (Hospitalization, Disabling)
  Sender: FDA-Public Use
  Company Number: WAES 0402USA01051

PATIENT
  Age: 75 Year
  Sex: Female

DRUGS (2)
  1. FOSAMAX [Suspect]
     Indication: OSTEOPOROSIS
     Route: 048
     Dates: start: 20011029, end: 20040127
  2. CLEANAL [Concomitant]
     Route: 048

REACTIONS (12)
  - CHOKING SENSATION [None]
  - CONSTIPATION [None]
  - DYSPHAGIA [None]
  - HYPERLIPIDAEMIA [None]
  - HYPERTENSION [None]
  - INSOMNIA [None]
  - NAIL TINEA [None]
  - NECROTISING OESOPHAGITIS [None]
  - OESOPHAGEAL CARCINOMA [None]
  - OESOPHAGEAL STENOSIS [None]
  - OESOPHAGEAL ULCER [None]
  - WEIGHT DECREASED [None]
